FAERS Safety Report 9334124 (Version 1)
Quarter: 2013Q2

REPORT INFORMATION
  Report Type: Spontaneous
  Country: US (occurrence: US)
  Receive Date: 20130606
  Receipt Date: 20130606
  Transmission Date: 20140414
  Serious: No
  Sender: FDA-Public Use
  Company Number: US-AMGEN-USASP2013018404

PATIENT
  Age: 81 Year
  Sex: Female

DRUGS (8)
  1. PROLIA [Suspect]
     Indication: OSTEOPOROSIS POSTMENOPAUSAL
     Dosage: UNK
     Dates: start: 201108
  2. PROLIA [Suspect]
  3. SYNTHROID [Concomitant]
  4. PRAVASTATIN [Concomitant]
  5. CALCIUM [Concomitant]
  6. VITAMIN D                          /00107901/ [Concomitant]
  7. MULTIVITAMIN                       /00097801/ [Concomitant]
  8. GINKGO BILOBA [Concomitant]

REACTIONS (7)
  - Pain [Unknown]
  - Viral infection [Not Recovered/Not Resolved]
  - Mobility decreased [Unknown]
  - Nail disorder [Unknown]
  - Hair disorder [Unknown]
  - Asthenia [Unknown]
  - Fatigue [Unknown]
